FAERS Safety Report 17075650 (Version 1)
Quarter: 2019Q4

REPORT INFORMATION
  Report Type: Spontaneous
  Country: US (occurrence: US)
  Receive Date: 20191125
  Receipt Date: 20191125
  Transmission Date: 20200122
  Serious: Yes (Other)
  Sender: FDA-Public Use
  Company Number: None

PATIENT
  Age: 63 Year
  Sex: Male

DRUGS (1)
  1. ESBRIET [Suspect]
     Active Substance: PIRFENIDONE
     Indication: PULMONARY ARTERIAL HYPERTENSION
     Route: 048
     Dates: start: 20190920, end: 20191125

REACTIONS (5)
  - Hepatic pain [None]
  - Insomnia [None]
  - Fatigue [None]
  - Constipation [None]
  - Decreased appetite [None]

NARRATIVE: CASE EVENT DATE: 20191125
